FAERS Safety Report 25021232 (Version 2)
Quarter: 2025Q2

REPORT INFORMATION
  Report Type: Spontaneous
  Country: US (occurrence: US)
  Receive Date: 20250228
  Receipt Date: 20250407
  Transmission Date: 20250717
  Serious: No
  Sender: ROCHE
  Company Number: US-ROCHE-10000217794

PATIENT
  Age: 66 Year
  Sex: Female

DRUGS (9)
  1. XOLAIR PFS [Suspect]
     Active Substance: OMALIZUMAB
     Indication: Mechanical urticaria
     Dosage: STRENGTH 150/MG/ML
     Route: 058
     Dates: start: 202312
  2. XOLAIR PFS [Suspect]
     Active Substance: OMALIZUMAB
  3. LEVOTHYROXINE [Concomitant]
     Active Substance: LEVOTHYROXINE
  4. LORATADINE [Concomitant]
     Active Substance: LORATADINE
  5. MAGNESIUM OXIDE [Concomitant]
     Active Substance: MAGNESIUM OXIDE
  6. ROSUVASTATIN [Concomitant]
     Active Substance: ROSUVASTATIN
  7. SUMATRIPTAN [Concomitant]
     Active Substance: SUMATRIPTAN
  8. TIZANIDINE [Concomitant]
     Active Substance: TIZANIDINE
  9. VERAPAMIL [Concomitant]
     Active Substance: VERAPAMIL HYDROCHLORIDE

REACTIONS (2)
  - Off label use [Unknown]
  - No adverse event [Unknown]

NARRATIVE: CASE EVENT DATE: 20231201
